FAERS Safety Report 25299736 (Version 1)
Quarter: 2025Q2

REPORT INFORMATION
  Report Type: Spontaneous
  Country: FR (occurrence: FR)
  Receive Date: 20250512
  Receipt Date: 20250512
  Transmission Date: 20250716
  Serious: Yes (Hospitalization)
  Sender: TEVA
  Company Number: None

PATIENT
  Age: 0 Day
  Sex: Male
  Weight: 2.74 kg

DRUGS (1)
  1. PAROXETINE [Suspect]
     Active Substance: PAROXETINE
     Indication: Depression
     Dosage: PAROXETINE BASE
     Route: 064
     Dates: end: 20230730

REACTIONS (6)
  - Agitation [Not Recovered/Not Resolved]
  - Abdominal distension [Recovered/Resolved]
  - Tachypnoea [Recovered/Resolved]
  - Cardiac murmur [Recovering/Resolving]
  - Maternal exposure during pregnancy [Recovered/Resolved]
  - Foetal malnutrition [Not Recovered/Not Resolved]

NARRATIVE: CASE EVENT DATE: 20230730
